FAERS Safety Report 17620638 (Version 1)
Quarter: 2020Q2

REPORT INFORMATION
  Report Type: Spontaneous
  Country: US (occurrence: US)
  Receive Date: 20200403
  Receipt Date: 20200403
  Transmission Date: 20200713
  Serious: No
  Sender: FDA-Public Use
  Company Number: US-BAYER-2020-052869

PATIENT
  Age: 43 Year
  Sex: Female

DRUGS (2)
  1. MIRENA [Suspect]
     Active Substance: LEVONORGESTREL
     Indication: CONTRACEPTION
     Dosage: 20 ?G PER DAY CONTINUOUSLY
     Route: 015
     Dates: start: 20200326, end: 20200326
  2. LEVONORGESTREL IUS [UNKNOWN] [Suspect]
     Active Substance: LEVONORGESTREL
     Dosage: UNKNOWN ?G PER DAY, CONTINUOUSLY
     Route: 015

REACTIONS (4)
  - Device placement issue [None]
  - Complication of device insertion [None]
  - Procedural pain [None]
  - Device difficult to use [None]

NARRATIVE: CASE EVENT DATE: 20200326
